FAERS Safety Report 21338403 (Version 2)
Quarter: 2023Q1

REPORT INFORMATION
  Report Type: Spontaneous
  Country: US (occurrence: US)
  Receive Date: 20220915
  Receipt Date: 20230118
  Transmission Date: 20230417
  Serious: No
  Sender: FDA-Public Use
  Company Number: US-BRISTOL-MYERS SQUIBB COMPANY-2022-106865

PATIENT
  Age: 22 Year
  Sex: Female

DRUGS (2)
  1. ORENCIA [Suspect]
     Active Substance: ABATACEPT
     Indication: Rheumatoid arthritis
     Route: 058
     Dates: start: 20220812
  2. ORENCIA [Suspect]
     Active Substance: ABATACEPT
     Dosage: FREQ: WEEKLY
     Route: 058
     Dates: start: 20220811

REACTIONS (1)
  - Drug ineffective [Unknown]
